FAERS Safety Report 6772494-8 (Version None)
Quarter: 2010Q2

REPORT INFORMATION
  Report Type: 
  Country: None (occurrence: None)
  Receive Date: 20100616
  Receipt Date: 20100322
  Transmission Date: 20101027
  Serious: No
  Sender: FDA-Public Use
  Company Number: US-ASTRAZENECA-2010SE12506

PATIENT
  Age: 57 Year
  Sex: Female
  Weight: 90.7 kg

DRUGS (4)
  1. PULMICORT FLEXHALER [Suspect]
     Indication: ASTHMA
     Route: 055
     Dates: start: 20100319, end: 20100320
  2. WARFARIN SODIUM [Concomitant]
  3. LEXAPRO [Concomitant]
  4. ASACOL [Concomitant]

REACTIONS (2)
  - ASTHMA [None]
  - DRUG INEFFECTIVE [None]
